FAERS Safety Report 5457397-3 (Version None)
Quarter: 2007Q3

REPORT INFORMATION
  Report Type: 
  Country: None (occurrence: None)
  Receive Date: 20070918
  Receipt Date: 20070228
  Transmission Date: 20080115
  Serious: No
  Sender: FDA-Public Use
  Company Number: US-ASTRAZENECA-2007UW03909

PATIENT
  Age: 39 Year
  Sex: Female
  Weight: 65.3 kg

DRUGS (5)
  1. SEROQUEL [Suspect]
     Indication: SCHIZOAFFECTIVE DISORDER
     Route: 048
  2. DEPAKOTE [Concomitant]
  3. LEXAPRO [Concomitant]
  4. TRILEPTAL [Concomitant]
  5. XANAX [Concomitant]

REACTIONS (6)
  - ARTHRALGIA [None]
  - BACK PAIN [None]
  - MUSCLE TWITCHING [None]
  - MYALGIA [None]
  - NECK PAIN [None]
  - WEIGHT INCREASED [None]
